FAERS Safety Report 4826559-8 (Version None)
Quarter: 2005Q4

REPORT INFORMATION
  Report Type: 
  Country: None (occurrence: None)
  Receive Date: 20051111
  Receipt Date: 20051107
  Transmission Date: 20060501
  Serious: Yes (Hospitalization, Disabling)
  Sender: FDA-Public Use
  Company Number: AU-MERCK-0511AUS00086

PATIENT
  Age: 72 Year
  Sex: Male

DRUGS (3)
  1. VIOXX [Suspect]
     Route: 048
     Dates: start: 20020101, end: 20040901
  2. ASPIRIN [Concomitant]
     Route: 065
  3. CLOPIDOGREL BISULFATE [Concomitant]
     Route: 065

REACTIONS (2)
  - CARDIAC DISORDER [None]
  - MYOCARDIAL INFARCTION [None]
